FAERS Safety Report 4481750-8 (Version None)
Quarter: 2004Q4

REPORT INFORMATION
  Report Type: 
  Country: None (occurrence: None)
  Receive Date: 20041021
  Receipt Date: 20041012
  Transmission Date: 20050328
  Serious: Yes (Hospitalization)
  Sender: FDA-Public Use
  Company Number: US-MERCK-0410USA01769

PATIENT
  Age: 54 Year
  Sex: Female

DRUGS (6)
  1. VIOXX [Suspect]
     Indication: FIBROMYALGIA
     Route: 065
  2. WELLBUTRIN [Concomitant]
     Route: 065
  3. FOSAMAX [Concomitant]
     Route: 065
  4. ZOCOR [Concomitant]
     Route: 065
  5. ZYRTEC [Concomitant]
     Route: 065
  6. LOMOTIL [Concomitant]
     Route: 065

REACTIONS (4)
  - ANGINA PECTORIS [None]
  - CARDIAC DISORDER [None]
  - CHEST PAIN [None]
  - DYSPNOEA [None]
